FAERS Safety Report 24915670 (Version 3)
Quarter: 2025Q3

REPORT INFORMATION
  Report Type: Spontaneous
  Country: JP (occurrence: JP)
  Receive Date: 20250203
  Receipt Date: 20250810
  Transmission Date: 20251021
  Serious: Yes (Hospitalization)
  Sender: ALEXION PHARMACEUTICALS
  Company Number: JP-ASTRAZENECA-250008973_032420_P_1

PATIENT
  Age: 60 Year
  Sex: Female
  Weight: 70 kg

DRUGS (25)
  1. TEZSPIRE [Suspect]
     Active Substance: TEZEPELUMAB-EKKO
     Indication: Asthma
     Dosage: 210 MILLIGRAM, Q4W
     Dates: start: 20241010, end: 20250102
  2. TEZSPIRE [Suspect]
     Active Substance: TEZEPELUMAB-EKKO
     Indication: Asthma
  3. MONTELUKAST [Concomitant]
     Active Substance: MONTELUKAST
     Indication: Asthma
     Dosage: 10 MILLIGRAM, QD
     Dates: start: 20200423
  4. MONTELUKAST [Concomitant]
     Active Substance: MONTELUKAST
     Indication: Asthma
  5. PROCATEROL HYDROCHLORIDE [Concomitant]
     Active Substance: PROCATEROL HYDROCHLORIDE
     Indication: Asthma
  6. PROCATEROL HYDROCHLORIDE [Concomitant]
     Active Substance: PROCATEROL HYDROCHLORIDE
     Indication: Asthma
  7. FLUTICASONE FUROATE\VILANTEROL TRIFENATATE [Concomitant]
     Active Substance: FLUTICASONE FUROATE\VILANTEROL TRIFENATATE
     Indication: Asthma
  8. FLUTICASONE FUROATE\VILANTEROL TRIFENATATE [Concomitant]
     Active Substance: FLUTICASONE FUROATE\VILANTEROL TRIFENATATE
     Indication: Asthma
  9. THEO-DUR [Concomitant]
     Active Substance: THEOPHYLLINE ANHYDROUS
     Indication: Asthma
     Dosage: 200 MILLIGRAM, QD
     Dates: start: 20210225
  10. THEO-DUR [Concomitant]
     Active Substance: THEOPHYLLINE ANHYDROUS
     Indication: Asthma
  11. SERTRALINE HYDROCHLORIDE [Concomitant]
     Active Substance: SERTRALINE HYDROCHLORIDE
     Indication: Depression
     Dosage: SINCE BEFORE 2023/03/18
  12. SERTRALINE HYDROCHLORIDE [Concomitant]
     Active Substance: SERTRALINE HYDROCHLORIDE
     Dosage: SINCE BEFORE 2023/03/18
  13. EPERISONE HYDROCHLORIDE [Concomitant]
     Active Substance: EPERISONE HYDROCHLORIDE
     Indication: Depression
     Dosage: SINCE BEFORE 2023/03/18
  14. EPERISONE HYDROCHLORIDE [Concomitant]
     Active Substance: EPERISONE HYDROCHLORIDE
     Dosage: SINCE BEFORE 2023/03/18
  15. ALPRAZOLAM [Concomitant]
     Active Substance: ALPRAZOLAM
     Indication: Depression
     Dosage: SINCE BEFORE 2023/03/18
  16. ALPRAZOLAM [Concomitant]
     Active Substance: ALPRAZOLAM
     Dosage: SINCE BEFORE 2023/03/18
  17. BROTIZOLAM [Concomitant]
     Active Substance: BROTIZOLAM
     Indication: Insomnia
     Dosage: SINCE BEFORE 2023/03/18
  18. BROTIZOLAM [Concomitant]
     Active Substance: BROTIZOLAM
     Dosage: SINCE BEFORE 2023/03/18
  19. FLUNITRAZEPAM [Concomitant]
     Active Substance: FLUNITRAZEPAM
     Indication: Insomnia
     Dosage: SINCE BEFORE 2023/03/18
  20. FLUNITRAZEPAM [Concomitant]
     Active Substance: FLUNITRAZEPAM
     Dosage: SINCE BEFORE 2023/03/18
  21. PREDONINE [Concomitant]
     Active Substance: PREDNISOLONE
     Indication: Asthma
     Dosage: 30 MILLIGRAM, QD
     Dates: start: 20250110
  22. PREDONINE [Concomitant]
     Active Substance: PREDNISOLONE
     Indication: Asthma
  23. DULOXETINE [Concomitant]
     Active Substance: DULOXETINE
     Indication: Depression
     Dosage: 20 MILLIGRAM, QD
     Dates: start: 20250107
  24. LANSOPRAZOLE [Concomitant]
     Active Substance: LANSOPRAZOLE
     Indication: Prophylaxis
     Dosage: 15 MILLIGRAM, QD
     Dates: start: 20250110
  25. SULFAMETHOXAZOLE\TRIMETHOPRIM [Concomitant]
     Active Substance: SULFAMETHOXAZOLE\TRIMETHOPRIM
     Indication: Prophylaxis
     Dosage: 2 DOSAGE FORM, QD
     Dates: start: 20250117

REACTIONS (1)
  - Interstitial lung disease [Recovering/Resolving]

NARRATIVE: CASE EVENT DATE: 20250109
